FAERS Safety Report 6540129-5 (Version None)
Quarter: 2010Q1

REPORT INFORMATION
  Report Type: 
  Country: None (occurrence: None)
  Receive Date: 20100115
  Receipt Date: 20100107
  Transmission Date: 20100710
  Serious: Yes (Hospitalization)
  Sender: FDA-Public Use
  Company Number: FR-ELI_LILLY_AND_COMPANY-FR200912001428

PATIENT
  Age: 79 Year
  Sex: Female
  Weight: 50 kg

DRUGS (6)
  1. FORTEO [Suspect]
     Indication: OSTEOPOROSIS
     Dosage: 20 UG, DAILY (1/D)
     Route: 058
     Dates: start: 20090303
  2. APROVEL [Concomitant]
     Indication: HYPERTENSION
     Dosage: 75 MG, DAILY (1/D)
     Route: 048
  3. NICERGOLINE [Concomitant]
     Indication: CEREBROVASCULAR ACCIDENT
     Dosage: 30 MG, DAILY (1/D)
     Route: 048
  4. PLAVIX [Concomitant]
     Indication: ANTICOAGULANT THERAPY
     Dosage: 75 MG, DAILY (1/D)
     Route: 048
  5. FLECAINIDE ACETATE [Concomitant]
     Dosage: 75 MG, DAILY (1/D)
     Route: 048
  6. LEVOTHYROXINE SODIUM [Concomitant]
     Indication: HYPOTHYROIDISM
     Dosage: 100 UG, DAILY (1/D)
     Route: 048

REACTIONS (2)
  - FALL [None]
  - PELVIC FRACTURE [None]
